FAERS Safety Report 24711285 (Version 1)
Quarter: 2024Q4

REPORT INFORMATION
  Report Type: Spontaneous
  Country: US (occurrence: None)
  Receive Date: 20241206
  Receipt Date: 20241206
  Transmission Date: 20250115
  Serious: No
  Sender: Public
  Company Number: None

PATIENT
  Sex: Female

DRUGS (1)
  1. SOGROYA [Suspect]
     Active Substance: SOMAPACITAN\SOMAPACITAN-BECO
     Indication: Hypopituitarism
     Dosage: FREQUENCY : WEEKLY;?
     Route: 042
     Dates: start: 202403

REACTIONS (5)
  - Exertional headache [None]
  - Dizziness exertional [None]
  - Fall [None]
  - Visual impairment [None]
  - Poor quality sleep [None]
